FAERS Safety Report 7485947-4 (Version None)
Quarter: 2011Q2

REPORT INFORMATION
  Report Type: 
  Country: None (occurrence: None)
  Receive Date: 20110517
  Receipt Date: 20110211
  Transmission Date: 20111010
  Serious: Yes (Hospitalization)
  Sender: FDA-Public Use
  Company Number: US-BAYER-2011-017788

PATIENT
  Age: 41 Year
  Sex: Male
  Weight: 99 kg

DRUGS (10)
  1. CYCLOPHOSPHAMIDE [Suspect]
     Indication: NON-HODGKIN'S LYMPHOMA
     Dosage: 750 MG/M2=1650MG
     Route: 042
     Dates: start: 20110201
  2. ADRIAMYCIN PFS [Suspect]
     Indication: NON-HODGKIN'S LYMPHOMA
     Dosage: 50MG/M2, Q2WK
     Route: 042
     Dates: start: 20110201
  3. KYTRIL [Concomitant]
     Indication: VOMITING
  4. ALLOPURINOL [Concomitant]
     Indication: TUMOUR LYSIS SYNDROME
     Dosage: 300 MG, UNK
  5. VINCRISTINE [Suspect]
     Indication: NON-HODGKIN'S LYMPHOMA
     Dosage: 1.4MG/M2=2 MG, Q2WK
     Route: 042
     Dates: start: 20110201
  6. VICODIN [Concomitant]
     Indication: PAIN
     Dosage: 1-2 PRN
  7. KYTRIL [Concomitant]
     Indication: NAUSEA
     Dosage: UNK UNK, PRN
  8. LEUKINE [Suspect]
     Indication: NON-HODGKIN'S LYMPHOMA
     Dosage: 250 MCG/M2=500 MG, QD
     Dates: start: 20110203
  9. PREDNISONE TAB [Suspect]
     Indication: NON-HODGKIN'S LYMPHOMA
     Dosage: 100 MG DAILY=500 MG
     Route: 048
     Dates: start: 20110201
  10. RITUXIMAB [Suspect]
     Indication: NON-HODGKIN'S LYMPHOMA
     Dosage: 750 MG/M2=825 MG, UNK
     Dates: start: 20110201

REACTIONS (6)
  - WHITE BLOOD CELL COUNT DECREASED [None]
  - HEADACHE [None]
  - FEELING HOT [None]
  - NEUTROPHIL COUNT DECREASED [None]
  - CHILLS [None]
  - POLLAKIURIA [None]
